FAERS Safety Report 7800162-X (Version None)
Quarter: 2011Q4

REPORT INFORMATION
  Report Type: 
  Country: None (occurrence: None)
  Receive Date: 20111004
  Receipt Date: 20110926
  Transmission Date: 20120403
  Serious: Yes (Hospitalization)
  Sender: FDA-Public Use
  Company Number: 2011SP045400

PATIENT
  Age: 68 Year
  Sex: Female

DRUGS (3)
  1. MIRTAZAPINE [Suspect]
     Indication: DEPRESSION
     Dosage: 15 MG;BID;PO
     Route: 048
     Dates: start: 20110901, end: 20110903
  2. VICTAN (ETHYL LOFLAZEPATE) [Suspect]
     Indication: ANXIETY
     Dosage: 2 MG;QD;PO
     Route: 048
     Dates: start: 20110901, end: 20110903
  3. LEVOTHYROXINE SODIUM [Concomitant]

REACTIONS (9)
  - HYPOTENSION [None]
  - VERTIGO [None]
  - LOSS OF CONSCIOUSNESS [None]
  - NAUSEA [None]
  - DEAFNESS NEUROSENSORY [None]
  - MALAISE [None]
  - GENERAL PHYSICAL HEALTH DETERIORATION [None]
  - FALL [None]
  - CAROTID ARTERY STENOSIS [None]
